FAERS Safety Report 12272196 (Version 3)
Quarter: 2016Q3

REPORT INFORMATION
  Report Type: Spontaneous
  Country: JP (occurrence: JP)
  Receive Date: 20160415
  Receipt Date: 20160727
  Transmission Date: 20161109
  Serious: Yes (Death, Hospitalization)
  Sender: FDA-Public Use
  Company Number: JP-ELI_LILLY_AND_COMPANY-JP201604003148

PATIENT
  Age: 77 Year
  Sex: Female
  Weight: 35.4 kg

DRUGS (6)
  1. CLARITH [Concomitant]
     Active Substance: CLARITHROMYCIN
     Indication: ATYPICAL MYCOBACTERIAL INFECTION
     Dosage: 600 MG, UNK
  2. GOSHAJINKIGAN [Concomitant]
     Active Substance: HERBALS
     Indication: NEUROPATHY PERIPHERAL
     Dosage: 2.5 G, TID
     Dates: start: 20150513
  3. RIFADIN [Concomitant]
     Active Substance: RIFAMPIN
     Indication: ATYPICAL MYCOBACTERIAL INFECTION
     Dosage: 300 MG, UNK
  4. ESANBUTOL                          /00022301/ [Concomitant]
     Indication: ATYPICAL MYCOBACTERIAL INFECTION
     Dosage: 500 MG, UNK
  5. CYRAMZA [Suspect]
     Active Substance: RAMUCIRUMAB
     Indication: GASTRIC CANCER STAGE IV
     Dosage: 250 MG, UNK
     Route: 042
     Dates: start: 20160330, end: 20160330
  6. CARBOCISTEINE [Concomitant]
     Active Substance: CARBOCYSTEINE
     Indication: ATYPICAL MYCOBACTERIAL INFECTION
     Dosage: 1 G, TID

REACTIONS (2)
  - Gastrointestinal perforation [Fatal]
  - Sepsis [Fatal]

NARRATIVE: CASE EVENT DATE: 20160406
